FAERS Safety Report 21110489 (Version 2)
Quarter: 2022Q3

REPORT INFORMATION
  Report Type: Spontaneous
  Country: FR (occurrence: FR)
  Receive Date: 20220721
  Receipt Date: 20220808
  Transmission Date: 20221026
  Serious: Yes (Other)
  Sender: FDA-Public Use
  Company Number: FR-SANOFI-01192963

PATIENT
  Age: 36 Year
  Sex: Male

DRUGS (1)
  1. LOVENOX [Suspect]
     Active Substance: ENOXAPARIN SODIUM
     Indication: Thrombosis prophylaxis
     Dosage: 1 DF, Q15D

REACTIONS (11)
  - Angina pectoris [Unknown]
  - Blood pressure increased [Recovered/Resolved]
  - Acne [Unknown]
  - Lividity [Unknown]
  - Ligament sprain [Not Recovered/Not Resolved]
  - Injection site discolouration [Not Recovered/Not Resolved]
  - Chest discomfort [Not Recovered/Not Resolved]
  - Hot flush [Not Recovered/Not Resolved]
  - Injection site paraesthesia [Not Recovered/Not Resolved]
  - Injection site reaction [Unknown]
  - Product administered at inappropriate site [Unknown]
